FAERS Safety Report 5489848-2 (Version None)
Quarter: 2007Q4

REPORT INFORMATION
  Report Type: 
  Country: None (occurrence: None)
  Receive Date: 20071018
  Receipt Date: 20071009
  Transmission Date: 20080405
  Serious: Yes (Hospitalization)
  Sender: FDA-Public Use
  Company Number: FR-BRISTOL-MYERS SQUIBB COMPANY-13944319

PATIENT
  Sex: Female
  Weight: 3 kg

DRUGS (5)
  1. ENDOXAN [Suspect]
     Indication: HODGKIN'S DISEASE
     Dosage: SECOND DOSE ON 13-AUG-2007
     Route: 064
     Dates: start: 20030702
  2. FARMORUBICINE [Suspect]
     Indication: HODGKIN'S DISEASE
     Dosage: SECOND DOSE ON 13-AUG-2007
     Route: 064
     Dates: start: 20030702
  3. FLUOROURACIL [Suspect]
     Indication: HODGKIN'S DISEASE
     Dosage: SECOND DOSE ON 13-AUG-2007
     Route: 064
     Dates: start: 20030702
  4. VITAMIN K [Concomitant]
  5. PREDNISOLONE [Concomitant]
     Dosage: SECOND DOSE ON 13-SEP-2007.
     Dates: start: 20030702, end: 20030702

REACTIONS (2)
  - PREGNANCY [None]
  - PREMATURE BABY [None]
